FAERS Safety Report 7332590-3 (Version None)
Quarter: 2011Q1

REPORT INFORMATION
  Report Type: 
  Country: None (occurrence: None)
  Receive Date: 20110304
  Receipt Date: 20110228
  Transmission Date: 20110831
  Serious: Yes (Death, Hospitalization)
  Sender: FDA-Public Use
  Company Number: PHHO2011JP03837

PATIENT
  Sex: Female
  Weight: 44 kg

DRUGS (17)
  1. VOLTAREN [Suspect]
     Dosage: 50 MG, BID
     Route: 054
     Dates: start: 20100818, end: 20100904
  2. JUVELA NICOTINATE [Suspect]
     Dosage: 200 MG, TID
     Route: 048
     Dates: start: 20100913
  3. CODEINE SULFATE [Suspect]
     Indication: COUGH
     Dosage: 2 G, QD
     Route: 048
     Dates: start: 20100915
  4. VOLTAREN [Suspect]
     Indication: RHEUMATOID ARTHRITIS
     Dosage: 50 MG, PRN
     Dates: start: 20100706
  5. DEXAMETHASONE SODIUM PHOSPHATE [Suspect]
     Indication: RHEUMATOID ARTHRITIS
     Dosage: 200 MG, QD
     Route: 042
     Dates: start: 20100911, end: 20100911
  6. OLMESARTAN MEDOXOMIL [Concomitant]
  7. FAMOTIDINE [Concomitant]
  8. FELBINAC [Concomitant]
  9. BAKTAR [Suspect]
     Dosage: UNK
     Route: 048
     Dates: start: 20100924, end: 20100927
  10. BENIDIPINE HYDROCHLORIDE [Concomitant]
  11. CELECOXIB [Suspect]
     Indication: RHEUMATOID ARTHRITIS
     Dosage: 100 MG, BID
     Route: 048
     Dates: start: 20100623, end: 20100905
  12. PREDONINE [Suspect]
     Indication: RHEUMATOID ARTHRITIS
     Dosage: 5 MG, QD
     Route: 048
     Dates: start: 20020111, end: 20100905
  13. PREDNISOLONE [Suspect]
     Dosage: 12 MG, QD
     Route: 048
     Dates: start: 20100906, end: 20100923
  14. GLYCYRON [Suspect]
     Indication: HEPATIC FUNCTION ABNORMAL
     Dosage: UNK
     Route: 048
     Dates: start: 20100913
  15. ISONIAZID [Concomitant]
  16. MAGNESIUM OXIDE HEAVY [Suspect]
     Indication: CONSTIPATION
     Dosage: 0.5 G, BID
     Route: 048
     Dates: start: 20100917
  17. LOXOPROFEN SODIUM [Suspect]
     Indication: RHEUMATOID ARTHRITIS
     Dosage: 60 MG, BID
     Route: 048
     Dates: start: 20041228, end: 20100905

REACTIONS (13)
  - HYPOAESTHESIA [None]
  - RHEUMATOID ARTHRITIS [None]
  - STREPTOCOCCUS TEST POSITIVE [None]
  - THROMBOTIC THROMBOCYTOPENIC PURPURA [None]
  - INTERSTITIAL LUNG DISEASE [None]
  - DISSEMINATED INTRAVASCULAR COAGULATION [None]
  - CONDITION AGGRAVATED [None]
  - NEISSERIA INFECTION [None]
  - PAIN [None]
  - COLITIS ISCHAEMIC [None]
  - LIVER DISORDER [None]
  - OEDEMA PERIPHERAL [None]
  - PLEURISY [None]
